FAERS Safety Report 10299629 (Version 2)
Quarter: 2014Q3

REPORT INFORMATION
  Report Type: Report from Study
  Country: JP (occurrence: JP)
  Receive Date: 20140711
  Receipt Date: 20140911
  Transmission Date: 20150326
  Serious: Yes (Other)
  Sender: FDA-Public Use
  Company Number: JP-ABBVIE-14P-087-1257726-00

PATIENT
  Age: 69 Year
  Sex: Female

DRUGS (7)
  1. LIPACREON CAPSULES 150MG [Suspect]
     Active Substance: PANCRELIPASE
     Indication: PANCREATIC INSUFFICIENCY
     Route: 048
     Dates: start: 20130624
  2. LANSOPRAZOLE. [Concomitant]
     Active Substance: LANSOPRAZOLE
     Indication: DISEASE COMPLICATION
     Route: 048
     Dates: end: 20131105
  3. FERROUS SODIUM CITRATE [Concomitant]
     Indication: DISEASE COMPLICATION
     Route: 048
  4. IMATINIB MESILATE [Concomitant]
     Active Substance: IMATINIB MESYLATE
     Indication: GASTROINTESTINAL STROMAL TUMOUR
     Dosage: CONTINUOUS ADMINISTRATION OF TWO WEEKS, AND THEN REST PERIOD OF 2 WEEKS; DAILY DOSE:300 MG
     Route: 048
     Dates: end: 20130930
  5. IMATINIB MESILATE [Concomitant]
     Active Substance: IMATINIB MESYLATE
     Indication: GASTROINTESTINAL STROMAL TUMOUR
     Dates: start: 20131016
  6. ADENINE [Concomitant]
     Active Substance: ADENINE
     Indication: NEUTROPHIL COUNT DECREASED
     Route: 048
  7. SITAGLIPTIN PHOSPHATE [Concomitant]
     Active Substance: SITAGLIPTIN PHOSPHATE
     Indication: DISEASE COMPLICATION
     Route: 048
     Dates: end: 20131105

REACTIONS (1)
  - Gastrointestinal stromal tumour [Not Recovered/Not Resolved]

NARRATIVE: CASE EVENT DATE: 20131011
